FAERS Safety Report 18586528 (Version 1)
Quarter: 2020Q4

REPORT INFORMATION
  Report Type: Spontaneous
  Country: US (occurrence: US)
  Receive Date: 20201207
  Receipt Date: 20201207
  Transmission Date: 20210114
  Serious: Yes (Hospitalization)
  Sender: FDA-Public Use
  Company Number: US-MYLANLABS-2020M1100102

PATIENT
  Age: 74 Year
  Sex: Female

DRUGS (6)
  1. PREDNISONE. [Suspect]
     Active Substance: PREDNISONE
     Indication: RETINITIS VIRAL
     Dosage: 60 MILLIGRAM
     Route: 048
  2. AZATHIOPRINE. [Suspect]
     Active Substance: AZATHIOPRINE
     Indication: DERMATOMYOSITIS
     Dosage: UNK
     Route: 065
  3. IMMUNOGLOBULIN                     /00025201/ [Suspect]
     Active Substance: HUMAN IMMUNOGLOBULIN G
     Indication: DERMATOMYOSITIS
     Dosage: UNK
     Route: 042
  4. PREDNISOLONE ACETATE. [Suspect]
     Active Substance: PREDNISOLONE ACETATE
     Indication: IRITIS
     Dosage: UNK
     Route: 061
  5. TRIAMCINOLONE [Suspect]
     Active Substance: TRIAMCINOLONE
     Indication: RETINITIS VIRAL
     Dosage: 40MG/1CC SUBTENONS
  6. VALACYCLOVIR                       /01269701/ [Concomitant]
     Active Substance: VALACYCLOVIR HYDROCHLORIDE
     Indication: RETINITIS VIRAL
     Dosage: 1 GRAM, TID
     Route: 065

REACTIONS (6)
  - Tractional retinal detachment [Recovering/Resolving]
  - Rhegmatogenous retinal detachment [Recovering/Resolving]
  - Off label use [Unknown]
  - Uveitis [Recovering/Resolving]
  - Eye infection toxoplasmal [Recovering/Resolving]
  - Toxoplasmosis [Recovering/Resolving]
